FAERS Safety Report 7096985-8 (Version None)
Quarter: 2010Q4

REPORT INFORMATION
  Report Type: 
  Country: None (occurrence: None)
  Receive Date: 20101111
  Receipt Date: 20100316
  Transmission Date: 20110411
  Serious: No
  Sender: FDA-Public Use
  Company Number: US-KINGPHARMUSA00001-K201000358

PATIENT
  Age: 42 Year
  Sex: Female

DRUGS (2)
  1. FLECTOR [Suspect]
     Indication: PAIN
     Dosage: UNK PATCH, UNK
     Route: 061
  2. TRAMADOL HCL [Concomitant]
     Dosage: UNK

REACTIONS (1)
  - APPLICATION SITE PAIN [None]
